FAERS Safety Report 6126653-8 (Version None)
Quarter: 2009Q1

REPORT INFORMATION
  Report Type: 
  Country: None (occurrence: None)
  Receive Date: 20090320
  Receipt Date: 20090309
  Transmission Date: 20090719
  Serious: Yes (Life-Threatening, Other)
  Sender: FDA-Public Use
  Company Number: CL-PFIZER INC-2009177816

PATIENT

DRUGS (1)
  1. ECALTA [Suspect]
     Indication: SYSTEMIC CANDIDA
     Dosage: 200 MG, UNK

REACTIONS (5)
  - ATRIOVENTRICULAR BLOCK [None]
  - BRADYCARDIA [None]
  - HYPOTENSION [None]
  - LOSS OF CONSCIOUSNESS [None]
  - NAUSEA [None]
